FAERS Safety Report 8813733 (Version 1)
Quarter: 2012Q4

REPORT INFORMATION
  Report Type: Report from Study
  Country: DE (occurrence: DE)
  Receive Date: 20120928
  Receipt Date: 20120928
  Transmission Date: 20130627
  Serious: Yes (Other)
  Sender: FDA-Public Use
  Company Number: DE-ROCHE-1133722

PATIENT
  Sex: Female

DRUGS (7)
  1. MABTHERA [Suspect]
     Indication: PRODUCT USED FOR UNKNOWN INDICATION
     Route: 065
     Dates: start: 20070604
  2. MABTHERA [Suspect]
     Route: 065
     Dates: start: 20080521
  3. MABTHERA [Suspect]
     Route: 065
     Dates: start: 20100319
  4. MABTHERA [Suspect]
     Route: 065
     Dates: start: 20110209
  5. MABTHERA [Suspect]
     Route: 065
     Dates: start: 20111105
  6. METHOTREXATE [Suspect]
     Indication: PRODUCT USED FOR UNKNOWN INDICATION
     Route: 065
     Dates: start: 200506
  7. ETANERCEPT [Concomitant]
     Route: 065
     Dates: start: 200606, end: 200705

REACTIONS (1)
  - Retinal vein thrombosis [Not Recovered/Not Resolved]
